FAERS Safety Report 23084430 (Version 1)
Quarter: 2023Q4

REPORT INFORMATION
  Report Type: Spontaneous
  Country: US (occurrence: None)
  Receive Date: 20231018
  Receipt Date: 20231018
  Transmission Date: 20240109
  Serious: Yes (Hospitalization)
  Sender: FDA-Public Use
  Company Number: None

PATIENT
  Age: 59 Year
  Sex: Male

DRUGS (1)
  1. VANCOMYCIN HYDROCHLORIDE [Suspect]
     Active Substance: VANCOMYCIN HYDROCHLORIDE
     Dosage: FREQUENCY : ONCE ?STRENGTH: 1GM/VIL
     Route: 042
     Dates: start: 20221216, end: 20221216

REACTIONS (9)
  - Erythema multiforme [None]
  - Pruritus [None]
  - Rash [None]
  - Dyspnoea [None]
  - Urticaria [None]
  - Blood pressure decreased [None]
  - Nausea [None]
  - Vancomycin infusion reaction [None]
  - Drug hypersensitivity [None]

NARRATIVE: CASE EVENT DATE: 20221216
